FAERS Safety Report 10166757 (Version 1)
Quarter: 2014Q2

REPORT INFORMATION
  Report Type: Spontaneous
  Country: CN (occurrence: CN)
  Receive Date: 20140512
  Receipt Date: 20140512
  Transmission Date: 20141212
  Serious: Yes (Death, Other)
  Sender: FDA-Public Use
  Company Number: CN-PFIZER INC-2014125528

PATIENT
  Age: 19 Year
  Sex: 0

DRUGS (4)
  1. SOLU-MEDROL [Suspect]
     Indication: ANTIALLERGIC THERAPY
     Dosage: 80 MG, 2X/DAY
     Route: 041
     Dates: start: 20140502
  2. VANCOMYCIN [Concomitant]
     Indication: ANTI-INFECTIVE THERAPY
     Dosage: UNK
  3. TIENAM [Concomitant]
     Indication: ANTI-INFECTIVE THERAPY
     Dosage: UNK
  4. AZITHROMYCIN [Concomitant]
     Indication: MYCOPLASMA INFECTION
     Route: 048

REACTIONS (7)
  - Multi-organ failure [Fatal]
  - Acute respiratory distress syndrome [Fatal]
  - Disseminated intravascular coagulation [Fatal]
  - Renal failure [Fatal]
  - Liver injury [Fatal]
  - Chest discomfort [Unknown]
  - Platelet count decreased [Unknown]
